FAERS Safety Report 7644103-7 (Version None)
Quarter: 2011Q3

REPORT INFORMATION
  Report Type: 
  Country: None (occurrence: None)
  Receive Date: 20110729
  Receipt Date: 20110725
  Transmission Date: 20111222
  Serious: Yes (Other)
  Sender: FDA-Public Use
  Company Number: US-JNJFOC-20110509338

PATIENT
  Sex: Male
  Weight: 92.99 kg

DRUGS (4)
  1. LEXAPRO [Concomitant]
     Indication: DEPRESSION
     Route: 065
  2. ZOCOR [Concomitant]
     Indication: BLOOD CHOLESTEROL
     Route: 065
  3. LEVAQUIN [Suspect]
     Indication: PNEUMONIA
     Route: 048
     Dates: start: 20090406, end: 20090416
  4. ALPRAZOLAM [Concomitant]
     Indication: DEPRESSION
     Route: 065

REACTIONS (3)
  - LIGAMENT INJURY [None]
  - TRIGGER FINGER [None]
  - TENDONITIS [None]
